FAERS Safety Report 7086599-8 (Version None)
Quarter: 2010Q4

REPORT INFORMATION
  Report Type: 
  Country: None (occurrence: None)
  Receive Date: 20101105
  Receipt Date: 20101102
  Transmission Date: 20110411
  Serious: Yes (Life-Threatening, Hospitalization, Other)
  Sender: FDA-Public Use
  Company Number: PHHY2009FR41350

PATIENT
  Sex: Male
  Weight: 102 kg

DRUGS (5)
  1. GLEEVEC [Suspect]
     Indication: GASTROINTESTINAL STROMAL TUMOUR
     Dosage: 400 MG/DAY
     Route: 048
     Dates: start: 20090810, end: 20090916
  2. GLEEVEC [Suspect]
     Dosage: 300 MG, UNK
     Route: 048
     Dates: start: 20091005
  3. CLAMOXYL [Concomitant]
     Indication: HELICOBACTER GASTRITIS
     Dosage: UNK
     Route: 048
     Dates: start: 20090801
  4. INIPOMP [Concomitant]
     Indication: HELICOBACTER GASTRITIS
     Dosage: UNK
     Route: 048
     Dates: start: 20090801
  5. NAXY [Concomitant]
     Indication: HELICOBACTER GASTRITIS
     Dosage: UNK
     Route: 048
     Dates: start: 20090801

REACTIONS (17)
  - AGRANULOCYTOSIS [None]
  - ARTHRALGIA [None]
  - ASCITES [None]
  - ASTHENIA [None]
  - COLECTOMY [None]
  - CONSTIPATION [None]
  - DERMAL CYST [None]
  - EYELID OEDEMA [None]
  - FATIGUE [None]
  - GASTRECTOMY [None]
  - MALIGNANT NEOPLASM PROGRESSION [None]
  - METASTASES TO LIVER [None]
  - METASTASES TO PERITONEUM [None]
  - MYALGIA [None]
  - PERITONSILLAR ABSCESS [None]
  - SEBACEOUS CYST EXCISION [None]
  - TUMOUR HAEMORRHAGE [None]
